FAERS Safety Report 6288908-6 (Version None)
Quarter: 2009Q3

REPORT INFORMATION
  Report Type: 
  Country: None (occurrence: None)
  Receive Date: 20090729
  Receipt Date: 20090715
  Transmission Date: 20100115
  Serious: Yes (Disabling)
  Sender: FDA-Public Use
  Company Number: GB-MYLANLABS-2009S1012584

PATIENT
  Age: 57 Year
  Sex: Male

DRUGS (3)
  1. RISPERIDONE [Suspect]
     Indication: SCHIZOPHRENIA, PARANOID TYPE
     Dates: start: 20081201
  2. ALBUTEROL [Concomitant]
     Indication: ASTHMA
     Route: 055
  3. SYMBICORT [Concomitant]
     Indication: ASTHMA
     Route: 055

REACTIONS (2)
  - ASTHMA [None]
  - CONDITION AGGRAVATED [None]
